FAERS Safety Report 6701836-4 (Version None)
Quarter: 2010Q2

REPORT INFORMATION
  Report Type: 
  Country: None (occurrence: None)
  Receive Date: 20100429
  Receipt Date: 20100329
  Transmission Date: 20101027
  Serious: Yes (Other)
  Sender: FDA-Public Use
  Company Number: US-BAYER-201019714NA

PATIENT
  Age: 70 Year
  Sex: Male
  Weight: 84 kg

DRUGS (25)
  1. MAGNEVIST [Suspect]
     Indication: ANGIOGRAM
     Dosage: TOTAL DAILY DOSE: 18 ML
     Route: 042
     Dates: start: 20051116, end: 20051116
  2. MAGNEVIST [Suspect]
     Dosage: TOTAL DAILY DOSE: 18 ML
     Route: 042
     Dates: start: 20051118, end: 20051118
  3. MAGNEVIST [Suspect]
     Dosage: TOTAL DAILY DOSE: 36 ML
     Route: 042
     Dates: start: 20051129, end: 20051129
  4. MAGNEVIST [Suspect]
     Dosage: TOTAL DAILY DOSE: 18 ML
     Route: 042
     Dates: start: 20060923, end: 20060923
  5. MAGNEVIST [Suspect]
     Dosage: TOTAL DAILY DOSE: 40 ML
     Route: 042
     Dates: start: 20051219, end: 20051219
  6. OMNISCAN [Suspect]
     Indication: NUCLEAR MAGNETIC RESONANCE IMAGING
     Dates: start: 19981120, end: 19981120
  7. OMNISCAN [Suspect]
     Dates: start: 20020531, end: 20020531
  8. OMNISCAN [Suspect]
     Dates: start: 20030325, end: 20030325
  9. OMNISCAN [Suspect]
     Dates: start: 20050419, end: 20050419
  10. UNSPECIFIED GADOLINIUM BASED CONTRAST AGENT [Suspect]
     Indication: AORTOGRAM
     Dates: start: 20031002, end: 20031002
  11. UNSPECIFIED GADOLINIUM BASED CONTRAST AGENT [Suspect]
     Dates: start: 20050420, end: 20050420
  12. FENOLDOPAM [Concomitant]
     Indication: PROPHYLAXIS
     Route: 042
     Dates: start: 20031001, end: 20031001
  13. EPOGEN [Concomitant]
  14. VENOFER [Concomitant]
  15. COREG [Concomitant]
  16. FUROSEMIDE [Concomitant]
  17. METOLAZONE [Concomitant]
  18. KLOR-CON [Concomitant]
  19. MAG-OX [Concomitant]
  20. WARFARIN SODIUM [Concomitant]
  21. ZEMPLAR [Concomitant]
  22. FOSRENOL [Concomitant]
  23. SPIRONOLACTONE [Concomitant]
  24. NORVASC [Concomitant]
  25. CLOBETASOL PROPIONATE [Concomitant]

REACTIONS (14)
  - ARTHRALGIA [None]
  - DEFORMITY [None]
  - ERYTHEMA [None]
  - EXTREMITY CONTRACTURE [None]
  - HYPOAESTHESIA [None]
  - ICHTHYOSIS ACQUIRED [None]
  - JOINT RANGE OF MOTION DECREASED [None]
  - MOTOR DYSFUNCTION [None]
  - NEPHROGENIC SYSTEMIC FIBROSIS [None]
  - OEDEMA PERIPHERAL [None]
  - SKIN DISORDER [None]
  - SKIN HYPERTROPHY [None]
  - SKIN INDURATION [None]
  - SKIN TIGHTNESS [None]
